FAERS Safety Report 13447986 (Version 1)
Quarter: 2017Q2

REPORT INFORMATION
  Report Type: Spontaneous
  Country: US (occurrence: US)
  Receive Date: 20170417
  Receipt Date: 20170417
  Transmission Date: 20170830
  Serious: No
  Sender: FDA-Public Use
  Company Number: US-BAYER-2017-073096

PATIENT
  Sex: Female

DRUGS (1)
  1. CLARITIN [Suspect]
     Active Substance: LORATADINE
     Indication: URTICARIA
     Dosage: UNK

REACTIONS (3)
  - Therapeutic response unexpected [Recovering/Resolving]
  - Therapeutic response unexpected [Recovered/Resolved]
  - Product use in unapproved indication [Unknown]
